FAERS Safety Report 9109659 (Version 2)
Quarter: 2013Q2

REPORT INFORMATION
  Report Type: Spontaneous
  Country: US (occurrence: US)
  Receive Date: 20130222
  Receipt Date: 20130605
  Transmission Date: 20140414
  Serious: Yes (Other)
  Sender: FDA-Public Use
  Company Number: US-PFIZER INC-2013065210

PATIENT
  Age: 49 Year
  Sex: Male
  Weight: 86.17 kg

DRUGS (2)
  1. PRISTIQ [Suspect]
     Indication: DEPRESSION
     Dosage: 100 MG, 1X/DAY
     Route: 048
     Dates: start: 2012, end: 20130531
  2. ABILIFY [Concomitant]
     Dosage: UNK, 1X/DAY

REACTIONS (7)
  - Suicide attempt [Unknown]
  - Hallucination, visual [Unknown]
  - Fatigue [Unknown]
  - Headache [Not Recovered/Not Resolved]
  - Sleep disorder [Not Recovered/Not Resolved]
  - Nightmare [Not Recovered/Not Resolved]
  - Nervousness [Unknown]
